FAERS Safety Report 18001884 (Version 1)
Quarter: 2020Q3

REPORT INFORMATION
  Report Type: Spontaneous
  Country: US (occurrence: US)
  Receive Date: 20200709
  Receipt Date: 20200709
  Transmission Date: 20201103
  Serious: No
  Sender: FDA-Public Use
  Company Number: US-BAYER-2020-132357

PATIENT
  Sex: Female

DRUGS (1)
  1. MIRENA [Suspect]
     Active Substance: LEVONORGESTREL
     Indication: HYPERTENSION
     Dosage: 20 ?G PER DAY CONTINOUSLY
     Route: 015

REACTIONS (3)
  - Headache [Not Recovered/Not Resolved]
  - Off label use of device [None]
  - Product use in unapproved indication [None]
